FAERS Safety Report 8384447-7 (Version None)
Quarter: 2012Q2

REPORT INFORMATION
  Report Type: 
  Country: None (occurrence: None)
  Receive Date: 20120524
  Receipt Date: 20120518
  Transmission Date: 20120825
  Serious: Yes (Hospitalization)
  Sender: FDA-Public Use
  Company Number: US-GLAXOSMITHKLINE-A0978780A

PATIENT
  Age: 34 Year
  Sex: Female

DRUGS (3)
  1. ZYRTEC [Concomitant]
  2. ALBUTEROL [Suspect]
  3. ADVAIR DISKUS 100/50 [Suspect]
     Indication: ASTHMA
     Route: 055
     Dates: start: 20111209, end: 20120301

REACTIONS (3)
  - DRUG INEFFECTIVE [None]
  - WHEEZING [None]
  - ASTHMA [None]
